FAERS Safety Report 5751945-1 (Version None)
Quarter: 2008Q2

REPORT INFORMATION
  Report Type: 
  Country: None (occurrence: None)
  Receive Date: 20080529
  Receipt Date: 20080528
  Transmission Date: 20081010
  Serious: Yes (Other)
  Sender: FDA-Public Use
  Company Number: US-BAYER-200817103NA

PATIENT
  Age: 20 Year
  Sex: Male

DRUGS (2)
  1. CIPRO [Suspect]
     Indication: SINUSITIS
     Route: 048
     Dates: start: 20080301
  2. ADVIL [Suspect]

REACTIONS (1)
  - CONVULSION [None]
